FAERS Safety Report 13174044 (Version 1)
Quarter: 2017Q1

REPORT INFORMATION
  Report Type: Spontaneous
  Country: US (occurrence: US)
  Receive Date: 20170131
  Receipt Date: 20170131
  Transmission Date: 20170428
  Serious: Yes (Hospitalization)
  Sender: FDA-Public Use
  Company Number: None

PATIENT
  Age: 67 Year
  Sex: Male
  Weight: 87.3 kg

DRUGS (8)
  1. COREG [Concomitant]
     Active Substance: CARVEDILOL
  2. ZAROXOLYN [Concomitant]
     Active Substance: METOLAZONE
  3. RANIBIZUMAB 0.3 MG GENENTECH [Suspect]
     Active Substance: RANIBIZUMAB
     Indication: DIABETIC RETINAL OEDEMA
     Dosage: ROUTE - INTRAVITREAL INJECTION
     Dates: start: 20140116
  4. ALDACTONE [Concomitant]
     Active Substance: SPIRONOLACTONE
  5. LEVEMIR [Concomitant]
     Active Substance: INSULIN DETEMIR
  6. COUMADIN [Concomitant]
     Active Substance: WARFARIN SODIUM
  7. LASIX [Concomitant]
     Active Substance: FUROSEMIDE
  8. LACTULOSE. [Concomitant]
     Active Substance: LACTULOSE

REACTIONS (2)
  - Hepatic encephalopathy [None]
  - Ammonia increased [None]

NARRATIVE: CASE EVENT DATE: 20140623
